FAERS Safety Report 23472033 (Version 1)
Quarter: 2024Q1

REPORT INFORMATION
  Report Type: Spontaneous
  Country: US (occurrence: US)
  Receive Date: 20240202
  Receipt Date: 20240202
  Transmission Date: 20240410
  Serious: No
  Sender: FDA-Public Use
  Company Number: US-SA-SAC20240125001466

PATIENT
  Age: 47 Year
  Sex: Male

DRUGS (1)
  1. DUPIXENT [Suspect]
     Active Substance: DUPILUMAB
     Indication: Dermatitis atopic
     Dosage: 300 MG, QOW
     Route: 058

REACTIONS (7)
  - Scratch [Unknown]
  - Skin swelling [Unknown]
  - Formication [Recovered/Resolved]
  - Skin discolouration [Unknown]
  - Erythema [Unknown]
  - Dermatitis atopic [Unknown]
  - Hypersensitivity [Unknown]
